FAERS Safety Report 18518422 (Version 1)
Quarter: 2020Q4

REPORT INFORMATION
  Report Type: Spontaneous
  Country: GB (occurrence: GB)
  Receive Date: 20201118
  Receipt Date: 20201118
  Transmission Date: 20210114
  Serious: Yes (Hospitalization)
  Sender: FDA-Public Use
  Company Number: GB-TEVA-2020-GB-1849367

PATIENT
  Age: 80 Year
  Sex: Female
  Weight: 52 kg

DRUGS (5)
  1. NITROFURANTOIN. [Suspect]
     Active Substance: NITROFURANTOIN
     Indication: URINARY TRACT INFECTION
     Dosage: 50 MILLIGRAM DAILY; EVERY NIGHT.
     Dates: start: 20190101, end: 20190930
  2. OMEPRAZOLE. [Concomitant]
     Active Substance: OMEPRAZOLE
  3. BECLOMETASONE [Concomitant]
     Active Substance: BECLOMETHASONE DIPROPIONATE
  4. GABAPENTIN. [Concomitant]
     Active Substance: GABAPENTIN
  5. SALBUTAMOL [Concomitant]
     Active Substance: ALBUTEROL

REACTIONS (5)
  - Bronchiectasis [Unknown]
  - Interstitial lung disease [Recovering/Resolving]
  - Pneumonia [Recovered/Resolved]
  - Pleural fibrosis [Recovering/Resolving]
  - Lower respiratory tract infection [Unknown]

NARRATIVE: CASE EVENT DATE: 201907
